FAERS Safety Report 18361110 (Version 1)
Quarter: 2020Q4

REPORT INFORMATION
  Report Type: Spontaneous
  Country: IT (occurrence: IT)
  Receive Date: 20201008
  Receipt Date: 20201008
  Transmission Date: 20210114
  Serious: Yes (Hospitalization)
  Sender: FDA-Public Use
  Company Number: IT-BIOVITRUM-2020IT5236

PATIENT
  Age: 56 Year
  Sex: Female

DRUGS (5)
  1. CIQORIN 50 MG CAPSULE MOLLI [Suspect]
     Active Substance: CYCLOSPORINE
     Indication: STILL^S DISEASE
     Route: 048
  2. MYCOSTATIN [Concomitant]
     Active Substance: NYSTATIN
  3. DELTACORTENE 5 MG COMPRESSE [Concomitant]
     Active Substance: PREDNISONE
  4. KINERET [Suspect]
     Active Substance: ANAKINRA
     Indication: STILL^S DISEASE
     Route: 058
     Dates: end: 20200221
  5. AMLODIPINE [Concomitant]
     Active Substance: AMLODIPINE BESYLATE

REACTIONS (8)
  - Dyspnoea [Recovering/Resolving]
  - Diarrhoea [Recovering/Resolving]
  - Pneumonia [Recovering/Resolving]
  - Interstitial lung disease [Recovering/Resolving]
  - Malaise [Recovering/Resolving]
  - Pyrexia [Recovering/Resolving]
  - COVID-19 pneumonia [Recovering/Resolving]
  - Myalgia [Recovering/Resolving]

NARRATIVE: CASE EVENT DATE: 20200311
